FAERS Safety Report 26131469 (Version 1)
Quarter: 2025Q4

REPORT INFORMATION
  Report Type: Spontaneous
  Country: US (occurrence: US)
  Receive Date: 20251208
  Receipt Date: 20251208
  Transmission Date: 20260118
  Serious: No
  Sender: ROCHE
  Company Number: US-ROCHE-10000448487

PATIENT
  Sex: Female

DRUGS (2)
  1. ALECENSA [Suspect]
     Active Substance: ALECTINIB HYDROCHLORIDE
     Indication: Lung neoplasm malignant
     Route: 048
     Dates: start: 202209
  2. ZARXIO [Suspect]
     Active Substance: FILGRASTIM-SNDZ
     Indication: Lung neoplasm malignant
     Route: 065

REACTIONS (1)
  - Arthralgia [Unknown]
